FAERS Safety Report 8994080 (Version 1)
Quarter: 2013Q1

REPORT INFORMATION
  Report Type: Spontaneous
  Country: US (occurrence: US)
  Receive Date: 20130102
  Receipt Date: 20130102
  Transmission Date: 20140127
  Serious: No
  Sender: FDA-Public Use
  Company Number: US-AMGEN-USASP2012082219

PATIENT
  Age: 56 Year
  Sex: Female

DRUGS (2)
  1. ENBREL [Suspect]
     Indication: RHEUMATOID ARTHRITIS
     Dosage: BIWEEKLY UNK
     Dates: start: 19991101, end: 201209
  2. HUMIRA [Concomitant]
     Dosage: UNK
     Dates: start: 201209

REACTIONS (3)
  - Pain [Recovered/Resolved]
  - Mobility decreased [Recovered/Resolved]
  - Joint swelling [Recovered/Resolved]
